FAERS Safety Report 5415482-6 (Version None)
Quarter: 2007Q3

REPORT INFORMATION
  Report Type: 
  Country: None (occurrence: None)
  Receive Date: 20070815
  Receipt Date: 20070806
  Transmission Date: 20080115
  Serious: Yes (Death, Hospitalization)
  Sender: FDA-Public Use
  Company Number: US-ROCHE-502236

PATIENT
  Age: 46 Year
  Weight: 61.3 kg

DRUGS (1)
  1. XELODA [Suspect]
     Dosage: FOR 14 DAYS
     Route: 048
     Dates: start: 20061005, end: 20061019

REACTIONS (6)
  - BREAST CANCER METASTATIC [None]
  - DEHYDRATION [None]
  - DIARRHOEA [None]
  - MUCOSAL INFLAMMATION [None]
  - PANCYTOPENIA [None]
  - STOMATITIS [None]
